FAERS Safety Report 9406145 (Version 1)
Quarter: 2013Q3

REPORT INFORMATION
  Report Type: Spontaneous
  Country: CA (occurrence: CA)
  Receive Date: 20130717
  Receipt Date: 20130717
  Transmission Date: 20140515
  Serious: Yes (Hospitalization)
  Sender: FDA-Public Use
  Company Number: CA-BAXTER-2013BAX026981

PATIENT
  Sex: Female

DRUGS (5)
  1. SODIUM CHLORIDE_SODIUM CHLORIDE 0.90 %_SOLUTION FOR INFUSION_BAG, PVC [Suspect]
     Indication: HAEMODIALYSIS
     Route: 042
  2. ACID CONCENTRATE D12272 [Suspect]
     Indication: HAEMODIALYSIS
     Route: 065
  3. HEPARIN [Suspect]
     Indication: HAEMODIALYSIS
     Dosage: 10ML X 1000 IU/ML
     Route: 041
  4. HEPARIN [Suspect]
     Dosage: 5ML X 10000 IU/ML
     Route: 041
  5. COUMADIN [Suspect]
     Indication: THROMBOSIS
     Route: 065

REACTIONS (2)
  - Thrombosis [Recovering/Resolving]
  - Pain [Recovered/Resolved]
